FAERS Safety Report 6928730-8 (Version None)
Quarter: 2010Q3

REPORT INFORMATION
  Report Type: 
  Country: None (occurrence: None)
  Receive Date: 20100809
  Receipt Date: 20100303
  Transmission Date: 20110219
  Serious: No
  Sender: FDA-Public Use
  Company Number: US-001454

PATIENT
  Sex: Male

DRUGS (2)
  1. DEGARELIX (240 MG, 80 MG( [Suspect]
     Dosage: 240 MG 1X, 120 MG X 2 SUBCUTANEOUS, 80 MG 1X/MONTH SUBCUTANEOUS
     Route: 058
     Dates: start: 20091120, end: 20091120
  2. DEGARELIX (240 MG, 80 MG( [Suspect]
     Dosage: 240 MG 1X, 120 MG X 2 SUBCUTANEOUS, 80 MG 1X/MONTH SUBCUTANEOUS
     Route: 058
     Dates: start: 20091217, end: 20091217

REACTIONS (1)
  - VISION BLURRED [None]
